FAERS Safety Report 10182544 (Version 1)
Quarter: 2014Q2

REPORT INFORMATION
  Report Type: Spontaneous
  Country: US (occurrence: None)
  Receive Date: 20140519
  Receipt Date: 20140519
  Transmission Date: 20141212
  Serious: Yes (Other)
  Sender: FDA-Public Use
  Company Number: None

PATIENT
  Age: 58 Year
  Sex: Female
  Weight: 57.15 kg

DRUGS (3)
  1. CETACAINE TOPICAL ANESTHETIC [Suspect]
     Indication: LOCAL ANAESTHESIA
     Dosage: 2 HALF SECOND SPRAYS
  2. ATACAND 2MG [Concomitant]
  3. XANAX 0.5 MG [Concomitant]

REACTIONS (4)
  - Dizziness [None]
  - Fatigue [None]
  - Blood pressure decreased [None]
  - Methaemoglobinaemia [None]
